FAERS Safety Report 16608164 (Version 2)
Quarter: 2019Q3

REPORT INFORMATION
  Report Type: Spontaneous
  Country: TR (occurrence: TR)
  Receive Date: 20190722
  Receipt Date: 20190820
  Transmission Date: 20191004
  Serious: Yes (Hospitalization)
  Sender: FDA-Public Use
  Company Number: TR-TEVA-2019-TR-1081446

PATIENT
  Age: 49 Year
  Sex: Male

DRUGS (9)
  1. IDARUBICIN [Suspect]
     Active Substance: IDARUBICIN
     Indication: DIFFUSE LARGE B-CELL LYMPHOMA STAGE III
     Dosage: PART OF R-IDARAM CHEMOTHERAPY
     Route: 065
  2. CYTARABINE ARABINOSIDE (ARA-C) [Suspect]
     Active Substance: CYTARABINE
     Indication: DIFFUSE LARGE B-CELL LYMPHOMA STAGE III
     Dosage: CYTARABINE ARABINOSIDE (ARA-C)
     Route: 037
  3. CARMUSTINE. [Suspect]
     Active Substance: CARMUSTINE
     Indication: BONE MARROW CONDITIONING REGIMEN
     Dosage: PART OF CONDITIONING REGIMEN
     Route: 065
  4. RITUXIMAB. [Suspect]
     Active Substance: RITUXIMAB
     Indication: BONE MARROW CONDITIONING REGIMEN
     Dosage: PART OF CONDITIONING REGIMEN
     Route: 065
  5. CYTOSINE ARABINOSIDE [Suspect]
     Active Substance: CYTARABINE
     Indication: DIFFUSE LARGE B-CELL LYMPHOMA STAGE III
     Dosage: PART OF R-IDARAM CHEMOTHERAPY
     Route: 065
  6. THIOTEPA. [Suspect]
     Active Substance: THIOTEPA
     Indication: BONE MARROW CONDITIONING REGIMEN
     Dosage: PART OF CONDITIONING REGIMEN
     Route: 065
  7. RITUXIMAB. [Suspect]
     Active Substance: RITUXIMAB
     Indication: DIFFUSE LARGE B-CELL LYMPHOMA STAGE III
     Dosage: PART OF R-IDARAM CHEMOTHERAPY
     Route: 065
  8. DEXAMETHASONE. [Suspect]
     Active Substance: DEXAMETHASONE
     Indication: DIFFUSE LARGE B-CELL LYMPHOMA STAGE III
     Dosage: PART OF R-IDARAM CHEMOTHERAPY
     Route: 065
  9. METHOTREXATE. [Suspect]
     Active Substance: METHOTREXATE
     Indication: DIFFUSE LARGE B-CELL LYMPHOMA STAGE III
     Dosage: ADMINISTERED INTRATHECAL OR INTRAVENOUS, PART OF R- IDARAM REGIMEN THERAPY.

REACTIONS (1)
  - Myelitis transverse [Recovering/Resolving]
